FAERS Safety Report 15163736 (Version 1)
Quarter: 2018Q3

REPORT INFORMATION
  Report Type: Spontaneous
  Country: US (occurrence: US)
  Receive Date: 20180719
  Receipt Date: 20180719
  Transmission Date: 20181010
  Serious: Yes (Other)
  Sender: FDA-Public Use
  Company Number: US-AMGEN-USASP2018094294

PATIENT
  Age: 68 Year
  Sex: Female

DRUGS (2)
  1. SYNTHROID [Concomitant]
     Active Substance: LEVOTHYROXINE SODIUM
     Dosage: UNK
  2. PROLIA [Suspect]
     Active Substance: DENOSUMAB
     Indication: OSTEOPOROSIS POSTMENOPAUSAL
     Dosage: 60 MG, Q6MO
     Route: 065

REACTIONS (8)
  - Palpitations [Unknown]
  - Feeling abnormal [Unknown]
  - Irritability [Unknown]
  - Fatigue [Unknown]
  - Supraventricular tachycardia [Unknown]
  - Uterine dilation and curettage [Unknown]
  - Thyroid disorder [Recovered/Resolved]
  - Pain [Unknown]
